FAERS Safety Report 13720860 (Version 1)
Quarter: 2017Q3

REPORT INFORMATION
  Report Type: Spontaneous
  Country: US (occurrence: US)
  Receive Date: 20170705
  Receipt Date: 20170705
  Transmission Date: 20171127
  Serious: Yes (Other)
  Sender: FDA-Public Use
  Company Number: None

PATIENT
  Age: 37 Year
  Sex: Female
  Weight: 85.5 kg

DRUGS (1)
  1. ZEPATIER [Suspect]
     Active Substance: ELBASVIR\GRAZOPREVIR
     Indication: HEPATITIS C VIRUS TEST
     Dosage: ?          OTHER DOSE:MG;?
     Route: 048

REACTIONS (3)
  - Insomnia [None]
  - Nausea [None]
  - Influenza like illness [None]

NARRATIVE: CASE EVENT DATE: 20170627
